FAERS Safety Report 7818994-0 (Version None)
Quarter: 2011Q4

REPORT INFORMATION
  Report Type: 
  Country: None (occurrence: None)
  Receive Date: 20111018
  Receipt Date: 20111005
  Transmission Date: 20120403
  Serious: Yes (Hospitalization)
  Sender: FDA-Public Use
  Company Number: AT-VERTEX PHARMACEUTICALS INC.-AE-2011-000190

PATIENT
  Sex: Female
  Weight: 49 kg

DRUGS (9)
  1. COPEGUS [Suspect]
     Route: 048
     Dates: start: 20110510
  2. PEGASYS [Suspect]
     Indication: HEPATITIS C
     Route: 058
     Dates: start: 20110315
  3. COPEGUS [Suspect]
     Dosage: 400MG IN THE MORNING AND 200MG IN THE EVENING
     Route: 048
     Dates: start: 20110414, end: 20110510
  4. COPEGUS [Suspect]
     Indication: HEPATITIS C
     Dosage: 600MG IN THE MORNING, 400MG IN THE EVENING
     Route: 048
     Dates: start: 20110315, end: 20110404
  5. METOCLOPRAMIDE HYDROCHLORIDE [Concomitant]
     Indication: VOMITING
     Route: 048
     Dates: start: 20110426
  6. LASIX [Concomitant]
     Indication: ABDOMINAL DISTENSION
     Route: 048
     Dates: start: 20110510
  7. INDERAL [Concomitant]
     Indication: PROPHYLAXIS
  8. VX-950 [Suspect]
     Indication: HEPATITIS C
     Route: 048
     Dates: start: 20110315
  9. COPEGUS [Suspect]
     Route: 048
     Dates: start: 20110404, end: 20110413

REACTIONS (2)
  - HYPOKALAEMIA [None]
  - ANAEMIA [None]
